FAERS Safety Report 6693172-X (Version None)
Quarter: 2010Q2

REPORT INFORMATION
  Report Type: 
  Country: None (occurrence: None)
  Receive Date: 20100422
  Receipt Date: 20100415
  Transmission Date: 20101027
  Serious: Yes (Hospitalization)
  Sender: FDA-Public Use
  Company Number: FR-ABBOTT-10P-056-0639079-00

PATIENT
  Age: 64 Year
  Sex: Male

DRUGS (2)
  1. VERCYTE TABLETS [Suspect]
     Indication: SPLENOMEGALY
     Route: 048
     Dates: start: 20050101, end: 20091201
  2. DANATROL [Suspect]
     Indication: SPLENOMEGALY
     Route: 048
     Dates: start: 20040101, end: 20100210

REACTIONS (9)
  - ASTHENIA [None]
  - CYTOLYTIC HEPATITIS [None]
  - DIABETES MELLITUS [None]
  - HEPATOMEGALY [None]
  - HYPERPHAGIA [None]
  - POLYDIPSIA [None]
  - POLYURIA [None]
  - SPLENOMEGALY [None]
  - WEIGHT DECREASED [None]
